FAERS Safety Report 7878275-6 (Version None)
Quarter: 2011Q4

REPORT INFORMATION
  Report Type: 
  Country: None (occurrence: None)
  Receive Date: 20111101
  Receipt Date: 20111011
  Transmission Date: 20120403
  Serious: Yes (Hospitalization)
  Sender: FDA-Public Use
  Company Number: CA-JNJFOC-20111012180

PATIENT
  Sex: Female
  Weight: 63.5 kg

DRUGS (10)
  1. CITALOPRAM HYDROBROMIDE [Concomitant]
  2. SYMBICORT [Concomitant]
  3. SYNTHROID [Concomitant]
  4. HYDROCHLOROTHIAZIDE [Concomitant]
  5. PRILOSEC [Concomitant]
  6. CALCIUM [Concomitant]
  7. TETRACYCLINE [Concomitant]
  8. ZOLEDRONOC ACID [Concomitant]
  9. REMICADE [Suspect]
     Indication: CROHN'S DISEASE
     Dates: start: 20090623
  10. VITAMIN D [Concomitant]

REACTIONS (4)
  - DERMAL CYST [None]
  - MUSCULOSKELETAL PAIN [None]
  - GAIT DISTURBANCE [None]
  - PAIN IN EXTREMITY [None]
